FAERS Safety Report 21126551 (Version 1)
Quarter: 2022Q3

REPORT INFORMATION
  Report Type: Spontaneous
  Country: US (occurrence: US)
  Receive Date: 20220725
  Receipt Date: 20220725
  Transmission Date: 20221027
  Serious: No
  Sender: FDA-Public Use
  Company Number: US-ABBVIE-21K-163-4003857-00

PATIENT

DRUGS (2)
  1. SYNTHROID [Suspect]
     Active Substance: LEVOTHYROXINE SODIUM
     Indication: Product used for unknown indication
     Route: 048
     Dates: start: 202106, end: 2021
  2. SYNTHROID [Suspect]
     Active Substance: LEVOTHYROXINE SODIUM
     Route: 048
     Dates: start: 2021

REACTIONS (12)
  - Critical illness [Unknown]
  - Muscle spasms [Unknown]
  - Fatigue [Unknown]
  - Bone pain [Unknown]
  - Dizziness [Unknown]
  - Syncope [Unknown]
  - Palpitations [Unknown]
  - Chest pain [Unknown]
  - Disorientation [Unknown]
  - Hyperhidrosis [Unknown]
  - Asthenia [Unknown]
  - Vision blurred [Unknown]

NARRATIVE: CASE EVENT DATE: 20210101
